FAERS Safety Report 4804636-5 (Version None)
Quarter: 2005Q4

REPORT INFORMATION
  Report Type: 
  Country: None (occurrence: None)
  Receive Date: 20051014
  Receipt Date: 20051005
  Transmission Date: 20060501
  Serious: Yes (Other)
  Sender: FDA-Public Use
  Company Number: 2005139016

PATIENT
  Sex: Female
  Weight: 86.1834 kg

DRUGS (5)
  1. ZOLOFT [Suspect]
     Indication: HYPERTHYROIDISM
     Dosage: (100 MG, 1 IN 1 D), ORAL
     Route: 048
     Dates: start: 20050501, end: 20050901
  2. TENORMIN [Concomitant]
  3. NORVASC [Concomitant]
  4. LASIX [Concomitant]
  5. ALLEGRA [Concomitant]

REACTIONS (6)
  - AGITATION [None]
  - ALANINE AMINOTRANSFERASE INCREASED [None]
  - BLOOD ALKALINE PHOSPHATASE INCREASED [None]
  - HEPATIC NEOPLASM [None]
  - INSOMNIA [None]
  - LUNG NEOPLASM [None]
